FAERS Safety Report 9008204 (Version 3)
Quarter: 2013Q1

REPORT INFORMATION
  Report Type: Report from Study
  Country: CA (occurrence: CA)
  Receive Date: 20130111
  Receipt Date: 20130124
  Transmission Date: 20140127
  Serious: Yes (Hospitalization, Other)
  Sender: FDA-Public Use
  Company Number: CA-UCBSA-074621

PATIENT
  Age: 20 Year
  Sex: Female
  Weight: 54.43 kg

DRUGS (6)
  1. CIMZIA [Suspect]
     Indication: CROHN^S DISEASE
     Route: 058
     Dates: start: 20121206, end: 20121222
  2. FOLIC ACID [Concomitant]
     Indication: CROHN^S DISEASE
     Route: 048
  3. METHOTREXATE [Concomitant]
     Indication: CROHN^S DISEASE
     Route: 048
  4. HUMIRA [Concomitant]
     Dosage: UNKNOWN
  5. ACYCLOVIR [Concomitant]
     Indication: HERPES ZOSTER
     Dosage: UNKNOWN
  6. CORTISONE [Concomitant]
     Indication: HERPES ZOSTER

REACTIONS (5)
  - Rash generalised [Not Recovered/Not Resolved]
  - Sinus congestion [Not Recovered/Not Resolved]
  - Crohn^s disease [Not Recovered/Not Resolved]
  - Fatigue [Not Recovered/Not Resolved]
  - Drug ineffective [Recovered/Resolved]
